FAERS Safety Report 5245597-7 (Version None)
Quarter: 2007Q1

REPORT INFORMATION
  Report Type: 
  Country: None (occurrence: None)
  Receive Date: 20070223
  Receipt Date: 20070212
  Transmission Date: 20070707
  Serious: Yes (Other)
  Sender: FDA-Public Use
  Company Number: CA-PFIZER INC-2007011682

PATIENT
  Age: 40 Year
  Sex: Female

DRUGS (3)
  1. ATGAM [Suspect]
     Indication: APLASTIC ANAEMIA
     Route: 042
     Dates: start: 20070205, end: 20070206
  2. DIPHENHYDRAMINE HCL [Concomitant]
  3. DRUG, UNSPECIFIED [Concomitant]
     Indication: PROPHYLAXIS
     Dates: start: 20070205

REACTIONS (4)
  - HYPERSENSITIVITY [None]
  - LOSS OF CONSCIOUSNESS [None]
  - RASH [None]
  - TREMOR [None]
